FAERS Safety Report 7745628-6 (Version None)
Quarter: 2011Q3

REPORT INFORMATION
  Report Type: 
  Country: None (occurrence: None)
  Receive Date: 20110913
  Receipt Date: 20100816
  Transmission Date: 20111222
  Serious: No
  Sender: FDA-Public Use
  Company Number: US-BAYER-201033705NA

PATIENT
  Age: 34 Year
  Sex: Female

DRUGS (1)
  1. MIRENA [Suspect]
     Indication: CONTRACEPTION
     Dosage: 20 ?G, QD
     Route: 015
     Dates: start: 20081101, end: 20100801

REACTIONS (4)
  - ALOPECIA [None]
  - IRRITABLE BOWEL SYNDROME [None]
  - MOOD SWINGS [None]
  - MUSCLE SPASMS [None]
